FAERS Safety Report 14741896 (Version 1)
Quarter: 2018Q2

REPORT INFORMATION
  Report Type: Spontaneous
  Country: US (occurrence: US)
  Receive Date: 20180410
  Receipt Date: 20180410
  Transmission Date: 20180711
  Serious: No
  Sender: FDA-Public Use
  Company Number: US-BAYER-2018-060022

PATIENT
  Sex: Female

DRUGS (3)
  1. MIRALAX [Suspect]
     Active Substance: POLYETHYLENE GLYCOL 3350
     Indication: ANORECTAL DISCOMFORT
  2. MIRALAX [Suspect]
     Active Substance: POLYETHYLENE GLYCOL 3350
     Indication: COLONOSCOPY
     Dosage: UNK
     Route: 048
     Dates: start: 20180226, end: 20180226
  3. MIRALAX [Suspect]
     Active Substance: POLYETHYLENE GLYCOL 3350
     Indication: HAEMORRHOIDS
     Dosage: 1 DOSE AS NEEDED DOSE1 DOSE AS NEEDED DOSE1 DOSE AS NEEDED DOSE1 DOSE AS NEEDED DOSE1 DOSE AS NEE
     Route: 048

REACTIONS (5)
  - Product use complaint [None]
  - Product use in unapproved indication [Unknown]
  - Faeces hard [None]
  - Off label use [Unknown]
  - Product use in unapproved indication [None]

NARRATIVE: CASE EVENT DATE: 20180226
